FAERS Safety Report 5242389-X (Version None)
Quarter: 2007Q1

REPORT INFORMATION
  Report Type: 
  Country: None (occurrence: None)
  Receive Date: 20070214
  Receipt Date: 20070201
  Transmission Date: 20070707
  Serious: Yes (Other)
  Sender: FDA-Public Use
  Company Number: 2007BI002280

PATIENT
  Age: 57 Year
  Sex: Female
  Weight: 92.9874 kg

DRUGS (2)
  1. AVONEX [Suspect]
     Indication: MULTIPLE SCLEROSIS
     Dosage: 30 UG; QW; IM
     Route: 030
     Dates: start: 20040101
  2. MORPHINE [Concomitant]

REACTIONS (12)
  - BLADDER DISORDER [None]
  - BONE DISORDER [None]
  - CONDITION AGGRAVATED [None]
  - FALL [None]
  - GASTROINTESTINAL DISORDER [None]
  - HYPOACUSIS [None]
  - HYPOAESTHESIA [None]
  - LOSS OF CONSCIOUSNESS [None]
  - MULTIPLE SCLEROSIS [None]
  - OSTEONECROSIS [None]
  - SPEECH DISORDER [None]
  - TREMOR [None]
